FAERS Safety Report 6305969-6 (Version None)
Quarter: 2009Q3

REPORT INFORMATION
  Report Type: 
  Country: None (occurrence: None)
  Receive Date: 20090812
  Receipt Date: 20071025
  Transmission Date: 20100115
  Serious: Yes (Other)
  Sender: FDA-Public Use
  Company Number: US-ASTRAZENECA-2006UW23753

PATIENT
  Age: 49 Year
  Sex: Male
  Weight: 86.2 kg

DRUGS (23)
  1. SEROQUEL [Suspect]
     Indication: SCHIZOPHRENIA
     Route: 048
     Dates: start: 20030101
  2. SEROQUEL [Suspect]
     Indication: DEPRESSION
     Route: 048
     Dates: start: 20030101
  3. SEROQUEL [Suspect]
     Indication: BIPOLAR DISORDER
     Route: 048
     Dates: start: 20030101
  4. SEROQUEL [Suspect]
     Indication: ANXIETY
     Route: 048
     Dates: start: 20030101
  5. SEROQUEL [Suspect]
     Indication: SLEEP DISORDER
     Route: 048
     Dates: start: 20030101
  6. SEROQUEL [Suspect]
     Indication: AFFECTIVE DISORDER
     Route: 048
     Dates: start: 20030101
  7. SEROQUEL [Suspect]
     Dosage: 100 MG - 900 MG DAILY
     Route: 048
     Dates: start: 20040105
  8. SEROQUEL [Suspect]
     Dosage: 100 MG - 900 MG DAILY
     Route: 048
     Dates: start: 20040105
  9. SEROQUEL [Suspect]
     Dosage: 100 MG - 900 MG DAILY
     Route: 048
     Dates: start: 20040105
  10. SEROQUEL [Suspect]
     Dosage: 100 MG - 900 MG DAILY
     Route: 048
     Dates: start: 20040105
  11. SEROQUEL [Suspect]
     Dosage: 100 MG - 900 MG DAILY
     Route: 048
     Dates: start: 20040105
  12. SEROQUEL [Suspect]
     Dosage: 100 MG - 900 MG DAILY
     Route: 048
     Dates: start: 20040105
  13. METFORMIN [Concomitant]
  14. INSULIN [Concomitant]
  15. OMEPRAZOLE [Concomitant]
     Indication: GASTROOESOPHAGEAL REFLUX DISEASE
     Route: 048
     Dates: start: 20040915
  16. LITHIUM [Concomitant]
     Dates: start: 20070301
  17. EFFEXOR [Concomitant]
     Dates: start: 20070301
  18. MIRTAZAPINE [Concomitant]
     Dates: start: 20070301
  19. OLANZAPINE [Concomitant]
     Dates: start: 20070301
  20. RISPERDAL [Concomitant]
     Indication: SCHIZOAFFECTIVE DISORDER
     Route: 048
     Dates: start: 20070327
  21. TRAZODONE HCL [Concomitant]
     Indication: SLEEP DISORDER
     Dosage: 50 MG - 100 MG AT NIGHT
     Route: 048
     Dates: start: 20070327
  22. KLONOPIN [Concomitant]
     Indication: SLEEP DISORDER
     Dates: start: 20060929
  23. SIMVASTATIN [Concomitant]
     Indication: DYSLIPIDAEMIA
     Route: 048
     Dates: start: 20070403

REACTIONS (4)
  - DIABETES MELLITUS [None]
  - NEUROPATHY PERIPHERAL [None]
  - PANCREATITIS [None]
  - WEIGHT DECREASED [None]
